FAERS Safety Report 8863065 (Version 3)
Quarter: 2013Q2

REPORT INFORMATION
  Report Type: Spontaneous
  Country: ES (occurrence: ES)
  Receive Date: 20121026
  Receipt Date: 20130528
  Transmission Date: 20140414
  Serious: Yes (Hospitalization)
  Sender: FDA-Public Use
  Company Number: ES-TEVA-366095ISR

PATIENT
  Age: 52 Year
  Sex: Female

DRUGS (23)
  1. 5-FU [Suspect]
     Indication: METASTATIC GASTRIC CANCER
     Dosage: 6156 MILLIGRAM DAILY; CURRENT CYCLE 2
     Route: 041
     Dates: start: 20120928
  2. CDDP [Suspect]
     Indication: METASTATIC GASTRIC CANCER
     Dosage: 123.12 MILLIGRAM DAILY; CURRENT CYCLE 2
     Route: 041
     Dates: start: 20120928
  3. CDDP [Suspect]
     Route: 041
     Dates: start: 20120903, end: 20120928
  4. KREON [Concomitant]
     Indication: PROPHYLAXIS
     Dates: start: 201205
  5. FUROSEMIDE [Concomitant]
     Indication: HYPERTENSION
     Dates: start: 201205
  6. SPIRONOLACTONE [Concomitant]
     Indication: HYPERTENSION
     Dates: start: 201205
  7. LORAZEPAM [Concomitant]
     Indication: PROPHYLAXIS
     Dates: start: 201205
  8. LORAZEPAM [Concomitant]
     Dates: start: 20121009, end: 20121017
  9. CORTICOSTEROIDS [Concomitant]
     Indication: MUCOSAL INFLAMMATION
     Dates: start: 20121004
  10. FENTANYL [Concomitant]
     Indication: TUMOUR PAIN
     Dates: start: 20121004
  11. PANTOPRAZOLE [Concomitant]
     Indication: PROPHYLAXIS
     Dates: start: 20121008, end: 20121016
  12. SUCRALFAT [Concomitant]
     Indication: PROPHYLAXIS
     Dates: start: 20121008, end: 20121011
  13. SUCRALFAT [Concomitant]
     Dates: start: 20121015
  14. OMEPRAZOLE [Concomitant]
     Indication: PROPHYLAXIS
  15. METOCLOPRAMIDE [Concomitant]
     Indication: NAUSEA
     Dates: start: 20121008, end: 20121017
  16. ONDANSETRON [Concomitant]
     Indication: NAUSEA
     Dates: start: 20121008, end: 20121011
  17. ENOXAPARIN [Concomitant]
     Indication: THROMBOSIS PROPHYLAXIS
     Dates: start: 20121008, end: 20121017
  18. NYSTATIN [Concomitant]
     Indication: MUCOSAL INFLAMMATION
     Dates: start: 20121008
  19. LIDOCAINE [Concomitant]
     Indication: MUCOSAL INFLAMMATION
     Dates: start: 20121008, end: 20121009
  20. DEXAMETHASONE [Concomitant]
     Indication: NAUSEA
     Dates: start: 20121008, end: 20121017
  21. PARACETAMOL [Concomitant]
     Indication: TUMOUR PAIN
     Dates: start: 20121008
  22. DEXKETOPROFEN [Concomitant]
     Indication: TUMOUR PAIN
     Dates: start: 20121008, end: 20121017
  23. MORPHINE [Concomitant]
     Indication: TUMOUR PAIN
     Dates: start: 20121008, end: 20121017

REACTIONS (1)
  - Dysphagia [Not Recovered/Not Resolved]
